FAERS Safety Report 24222641 (Version 1)
Quarter: 2024Q3

REPORT INFORMATION
  Report Type: Spontaneous
  Country: US (occurrence: None)
  Receive Date: 20240816
  Receipt Date: 20240816
  Transmission Date: 20241016
  Serious: Yes (Hospitalization)
  Sender: Public
  Company Number: None

PATIENT
  Age: 79 Year
  Sex: Female

DRUGS (12)
  1. AMBRISENTAN [Suspect]
     Active Substance: AMBRISENTAN
     Indication: Pulmonary arterial hypertension
     Dates: start: 20190925
  2. ADEMPAS [Concomitant]
     Active Substance: RIOCIGUAT
  3. ADEMPAS [Concomitant]
     Active Substance: RIOCIGUAT
  4. ADEMPAS [Concomitant]
     Active Substance: RIOCIGUAT
  5. ADEMPAS [Concomitant]
     Active Substance: RIOCIGUAT
  6. ADEMPAS [Concomitant]
     Active Substance: RIOCIGUAT
  7. AMBRISENTAN [Concomitant]
     Active Substance: AMBRISENTAN
  8. AMBRISENTAN [Concomitant]
     Active Substance: AMBRISENTAN
  9. ANORO ELLIPTA [Concomitant]
     Active Substance: UMECLIDINIUM BROMIDE\VILANTEROL TRIFENATATE
  10. ANORA ELLIPTA [Concomitant]
  11. PREDNISONE [Concomitant]
  12. TYVASO START SOL 0.6MG/ML [Concomitant]

REACTIONS (1)
  - Hospitalisation [None]

NARRATIVE: CASE EVENT DATE: 20240809
